FAERS Safety Report 5419423-7 (Version None)
Quarter: 2007Q3

REPORT INFORMATION
  Report Type: 
  Country: None (occurrence: None)
  Receive Date: 20070820
  Receipt Date: 20070814
  Transmission Date: 20080115
  Serious: Yes (Life-Threatening, Hospitalization)
  Sender: FDA-Public Use
  Company Number: B0433121A

PATIENT
  Age: 56 Year
  Sex: Female
  Weight: 55 kg

DRUGS (9)
  1. ZOVIRAX [Suspect]
     Indication: ENCEPHALITIS HERPES
     Route: 042
     Dates: start: 20060719, end: 20060722
  2. GLYCEOL [Suspect]
     Indication: ENCEPHALITIS HERPES
     Dosage: 200ML TWICE PER DAY
     Route: 042
     Dates: start: 20060719, end: 20060721
  3. DECADRON [Concomitant]
     Indication: ENCEPHALITIS HERPES
     Dosage: 16MG PER DAY
     Route: 042
     Dates: start: 20060719, end: 20060724
  4. ALEVIATIN [Concomitant]
     Indication: CONVULSION
     Route: 042
     Dates: start: 20060719, end: 20060731
  5. ARASENA-A [Concomitant]
     Indication: ENCEPHALITIS HERPES
     Route: 042
     Dates: start: 20060722, end: 20060807
  6. ZANTAC 150 [Concomitant]
     Indication: GASTRIC ULCER
     Dosage: 100MG PER DAY
     Route: 042
     Dates: start: 20060721
  7. FUROSEMIDE [Concomitant]
     Dates: start: 20060722
  8. DOPAMINE HCL [Concomitant]
     Dates: start: 20060722
  9. CARPERITIDE [Concomitant]
     Dates: start: 20060722

REACTIONS (5)
  - BLOOD CREATININE INCREASED [None]
  - DEHYDRATION [None]
  - PULMONARY EMBOLISM [None]
  - RENAL FAILURE ACUTE [None]
  - URINE OUTPUT DECREASED [None]
